FAERS Safety Report 17143618 (Version 2)
Quarter: 2019Q4

REPORT INFORMATION
  Report Type: Spontaneous
  Country: US (occurrence: US)
  Receive Date: 20191212
  Receipt Date: 20191216
  Transmission Date: 20200122
  Serious: No
  Sender: FDA-Public Use
  Company Number: US-PFIZER INC-2019532547

PATIENT
  Sex: Female

DRUGS (3)
  1. TAPAZOLE [Suspect]
     Active Substance: METHIMAZOLE
     Indication: BASEDOW^S DISEASE
     Dosage: 5 MG, UNK
  2. TAPAZOLE [Suspect]
     Active Substance: METHIMAZOLE
     Dosage: 2.5 MG, (TOOK IT DOWN TO 2.5MG EVERY 2 OTHER DAY)
  3. TAPAZOLE [Suspect]
     Active Substance: METHIMAZOLE
     Dosage: 2.5 MG (TOOK IT DOWN TO 2.5MG EVERY OTHER DAY)

REACTIONS (9)
  - Pre-existing condition improved [Unknown]
  - Product use issue [Unknown]
  - Blood thyroid stimulating hormone increased [Not Recovered/Not Resolved]
  - Feeling abnormal [Not Recovered/Not Resolved]
  - Blood test abnormal [Unknown]
  - Off label use [Unknown]
  - Therapeutic product effect incomplete [Unknown]
  - Thyroxine decreased [Not Recovered/Not Resolved]
  - Therapeutic response unexpected [Unknown]
